FAERS Safety Report 5160176-8 (Version None)
Quarter: 2006Q4

REPORT INFORMATION
  Report Type: 
  Country: None (occurrence: None)
  Receive Date: 20061129
  Receipt Date: 20040726
  Transmission Date: 20070319
  Serious: Yes (Other)
  Sender: FDA-Public Use
  Company Number: US-NOVOPROD-238344

PATIENT
  Sex: Female
  Weight: 90.703 kg

DRUGS (16)
  1. ACTIVELLA [Suspect]
     Indication: HORMONE REPLACEMENT THERAPY
     Dosage: 1 MG/0.5 MG
     Route: 048
     Dates: start: 20020401, end: 20021201
  2. PREMPRO [Suspect]
     Indication: HORMONE REPLACEMENT THERAPY
     Dosage: 0.625/2 MG
     Route: 048
     Dates: start: 19970601, end: 20020101
  3. PREMARIN [Suspect]
     Indication: HORMONE REPLACEMENT THERAPY
     Dosage: .625 MG, UNK
     Route: 048
     Dates: start: 19940201, end: 19940601
  4. PREMARIN [Suspect]
     Dosage: .3 MG, UNK
     Route: 048
     Dates: start: 19940701, end: 19970601
  5. PROVERA [Concomitant]
     Indication: HORMONE REPLACEMENT THERAPY
     Dosage: 5 MG, UNK
     Route: 048
     Dates: start: 19940201, end: 19960201
  6. PROVERA [Concomitant]
     Dosage: 2.5 MG, UNK
     Route: 048
     Dates: start: 19960301, end: 19970601
  7. EVISTA [Concomitant]
     Indication: ILL-DEFINED DISORDER
     Dosage: UNKNOWN
     Route: 048
     Dates: start: 20020801, end: 20031001
  8. VAGIFEM [Concomitant]
     Indication: ILL-DEFINED DISORDER
     Dosage: 25 MG, UNK
     Route: 067
     Dates: start: 20051101
  9. HUMULIN N                          /00030504/ [Concomitant]
     Indication: DIABETES MELLITUS INSULIN-DEPENDENT
     Dosage: UNKNOWN
     Route: 058
     Dates: start: 19800101
  10. IMDUR [Concomitant]
     Indication: ILL-DEFINED DISORDER
     Dosage: 30 MG, UNK
     Route: 048
  11. METOPROLOL SUCCINATE [Concomitant]
     Indication: ILL-DEFINED DISORDER
     Dosage: UNKNOWN
     Route: 048
  12. GLUCOPHAGE                         /00082701/ [Concomitant]
     Indication: DIABETES MELLITUS INSULIN-DEPENDENT
     Dosage: UNKNOWN
     Route: 048
  13. LOTREL                             /01289101/ [Concomitant]
     Indication: ILL-DEFINED DISORDER
     Dosage: UNKNOWN
     Route: 048
  14. ATIVAN [Concomitant]
     Indication: ILL-DEFINED DISORDER
     Dosage: UNKNOWN
     Route: 048
  15. ASPIRIN [Concomitant]
     Indication: ILL-DEFINED DISORDER
     Dosage: UNKNOWN
     Route: 048
  16. ZYRTEC [Concomitant]
     Indication: ILL-DEFINED DISORDER
     Dosage: UNKNOWN
     Route: 048

REACTIONS (4)
  - DILATATION ATRIAL [None]
  - DILATATION VENTRICULAR [None]
  - EJECTION FRACTION DECREASED [None]
  - MYOCARDIAL INFARCTION [None]
